FAERS Safety Report 5033066-9 (Version None)
Quarter: 2006Q2

REPORT INFORMATION
  Report Type: 
  Country: None (occurrence: None)
  Receive Date: 20060504
  Receipt Date: 20050314
  Transmission Date: 20061013
  Serious: Yes (Other)
  Sender: FDA-Public Use
  Company Number: PHEH2005US03328

PATIENT
  Age: 7 Year
  Sex: Female

DRUGS (4)
  1. TEGRETOL [Suspect]
     Indication: EPILEPSY
     Dosage: ORAL
     Route: 048
     Dates: start: 19900101, end: 19990101
  2. SABRIL [Suspect]
     Indication: EPILEPSY
     Dosage: ONE TABLET BID, ORAL
     Route: 048
     Dates: end: 19930701
  3. SABRIL [Suspect]
     Indication: EPILEPSY
     Dosage: ONE TABLET BID, ORAL
     Route: 048
     Dates: start: 19930101
  4. SABRIL [Suspect]
     Indication: EPILEPSY
     Dosage: ONE TABLET BID, ORAL
     Route: 048
     Dates: start: 19930701

REACTIONS (6)
  - CLONUS [None]
  - DRUG INEFFECTIVE [None]
  - EPILEPSY [None]
  - HEADACHE [None]
  - LOSS OF CONSCIOUSNESS [None]
  - VISUAL DISTURBANCE [None]
